FAERS Safety Report 19407206 (Version 1)
Quarter: 2021Q2

REPORT INFORMATION
  Report Type: Spontaneous
  Country: US (occurrence: US)
  Receive Date: 20210611
  Receipt Date: 20210611
  Transmission Date: 20210717
  Serious: No
  Sender: FDA-Public Use
  Company Number: US-ELI_LILLY_AND_COMPANY-US202106005377

PATIENT
  Age: 82 Year
  Sex: Female

DRUGS (2)
  1. TRULICITY [Suspect]
     Active Substance: DULAGLUTIDE
     Indication: TYPE 2 DIABETES MELLITUS
     Dosage: 0.75 MG, UNKNOWN
     Route: 065
     Dates: start: 20210602
  2. GLIPIZIDE. [Concomitant]
     Active Substance: GLIPIZIDE
     Indication: PRODUCT USED FOR UNKNOWN INDICATION
     Dosage: UNK

REACTIONS (6)
  - Nausea [Unknown]
  - Chest pain [Unknown]
  - Flatulence [Unknown]
  - Abnormal faeces [Unknown]
  - Constipation [Unknown]
  - Eructation [Unknown]

NARRATIVE: CASE EVENT DATE: 20210604
